FAERS Safety Report 8355958-5 (Version None)
Quarter: 2012Q2

REPORT INFORMATION
  Report Type: 
  Country: None (occurrence: None)
  Receive Date: 20120511
  Receipt Date: 20120511
  Transmission Date: 20120825
  Serious: No
  Sender: FDA-Public Use
  Company Number: None

PATIENT
  Age: 57 Year

DRUGS (1)
  1. CYMBALTA [Suspect]
     Indication: NEUROPATHY PERIPHERAL
     Dosage: 30MG 1 AT DINNER BUCCAL
     Route: 002
     Dates: start: 20120430, end: 20120502

REACTIONS (8)
  - VOMITING [None]
  - NAUSEA [None]
  - HALLUCINATION, VISUAL [None]
  - DECREASED APPETITE [None]
  - SOMNOLENCE [None]
  - AGITATION [None]
  - TREMOR [None]
  - MUSCLE TWITCHING [None]
